FAERS Safety Report 6268539-4 (Version None)
Quarter: 2009Q3

REPORT INFORMATION
  Report Type: 
  Country: None (occurrence: None)
  Receive Date: 20090713
  Receipt Date: 20090713
  Transmission Date: 20100115
  Serious: No
  Sender: FDA-Public Use
  Company Number: None

PATIENT
  Age: 60 Year
  Sex: Female
  Weight: 79.3795 kg

DRUGS (1)
  1. JANUVIA [Suspect]
     Indication: DIABETES MELLITUS
     Dosage: 100MG 1 TABLET DAILY PO
     Route: 048
     Dates: start: 20090626, end: 20090710

REACTIONS (9)
  - COUGH [None]
  - DYSPHAGIA [None]
  - DYSPNOEA [None]
  - FEAR [None]
  - HYPOAESTHESIA [None]
  - LIP SWELLING [None]
  - LOCAL SWELLING [None]
  - SWOLLEN TONGUE [None]
  - THROAT TIGHTNESS [None]
